FAERS Safety Report 17854387 (Version 2)
Quarter: 2020Q2

REPORT INFORMATION
  Report Type: Spontaneous
  Country: US (occurrence: US)
  Receive Date: 20200603
  Receipt Date: 20200622
  Transmission Date: 20200714
  Serious: Yes (Other)
  Sender: FDA-Public Use
  Company Number: US-MYLANLABS-2020M1053456

PATIENT
  Sex: Male

DRUGS (6)
  1. LITHIUM. [Concomitant]
     Active Substance: LITHIUM
     Dosage: UNK
  2. HALDOL [Concomitant]
     Active Substance: HALOPERIDOL
     Dosage: UNK
  3. LITHIUM. [Concomitant]
     Active Substance: LITHIUM
     Dosage: UNK
  4. LITHIUM. [Suspect]
     Active Substance: LITHIUM
     Indication: BIPOLAR DISORDER
     Dosage: 1200 MILLIGRAM (HE WAS TAKING IT IN THE MORNING AND AT NIGHT)
     Route: 048
  5. LITHIUM. [Suspect]
     Active Substance: LITHIUM
     Indication: DEPRESSION
  6. PROLIXIN [Concomitant]
     Active Substance: FLUPHENAZINE HYDROCHLORIDE
     Dosage: UNK

REACTIONS (2)
  - Drug ineffective [Recovering/Resolving]
  - Condition aggravated [Recovered/Resolved]
